FAERS Safety Report 19030151 (Version 1)
Quarter: 2021Q1

REPORT INFORMATION
  Report Type: Spontaneous
  Country: ES (occurrence: ES)
  Receive Date: 20210319
  Receipt Date: 20210319
  Transmission Date: 20210420
  Serious: Yes (Other)
  Sender: FDA-Public Use
  Company Number: ES-ORGANON-O2103ESP001296

PATIENT
  Age: 52 Year
  Sex: Male
  Weight: 78 kg

DRUGS (2)
  1. CELESTONE CRONODOSE [Suspect]
     Active Substance: BETAMETHASONE
     Indication: LUMBOSACRAL RADICULOPATHY
     Dosage: A FULL VIAL (FORMULATION REPORTED AS ^SUSPENSION FOR INJECTION^)
     Route: 024
     Dates: start: 20210224
  2. CELESTONE CRONODOSE [Concomitant]
     Active Substance: BETAMETHASONE
     Indication: LUMBOSACRAL RADICULOPATHY
     Dosage: 1 VIAL / 2 ML (FORMULATION REPORTED AS ^SUSPENSION FOR INJECTION^)
     Dates: start: 20210224, end: 20210224

REACTIONS (4)
  - Dyspepsia [Recovered/Resolved]
  - Discoloured vomit [Recovered/Resolved]
  - Oesophagitis [Recovered/Resolved]
  - Gastritis [Recovered/Resolved]

NARRATIVE: CASE EVENT DATE: 20210224
